FAERS Safety Report 4356774-1 (Version None)
Quarter: 2004Q2

REPORT INFORMATION
  Report Type: 
  Country: None (occurrence: None)
  Receive Date: 20040507
  Receipt Date: 20040426
  Transmission Date: 20050107
  Serious: Yes (Hospitalization, Other)
  Sender: FDA-Public Use
  Company Number: 2004023410

PATIENT
  Age: 67 Year
  Sex: Female
  Weight: 52.1637 kg

DRUGS (6)
  1. NEURONTIN [Suspect]
     Indication: NEUROPATHY
     Dosage: 600 MG (BID), ORAL
     Route: 048
     Dates: start: 20030101
  2. ROFECOXIB [Suspect]
     Indication: ILL-DEFINED DISORDER
  3. IBUPROFEN [Concomitant]
  4. LOTREL [Concomitant]
  5. ALENDRONATE SODIUM [Concomitant]
  6. PROVELLA-14 (ESTROGENS CONJUGATED, MEDROXYPROGESTERONE ACETATE) [Concomitant]

REACTIONS (7)
  - COMPRESSION FRACTURE [None]
  - CONVULSION [None]
  - HYPONATRAEMIA [None]
  - MUSCLE CRAMP [None]
  - NAUSEA [None]
  - NEURALGIA [None]
  - VOMITING [None]
